FAERS Safety Report 8763413 (Version 2)
Quarter: 2012Q4

REPORT INFORMATION
  Report Type: Spontaneous
  Country: US (occurrence: None)
  Receive Date: 20120814
  Receipt Date: 20120921
  Transmission Date: 20130627
  Serious: Yes (Hospitalization)
  Sender: FDA-Public Use
  Company Number: AEUSA201200400

PATIENT
  Age: 61 Year
  Sex: Female
  Weight: 90.72 kg

DRUGS (8)
  1. BENADRYL /0000402 /UNKNOWN - UNKNOWN [Concomitant]
  2. TYLENOL /00020001/UNKNOWN -UNKNOWN [Concomitant]
  3. DONEPEZIL [Concomitant]
  4. TRAZODONE [Concomitant]
  5. CLONAZEPAM [Concomitant]
  6. PRAVASTATIN [Concomitant]
  7. LAMICTAL [Concomitant]
  8. GAMUNEX-C [Suspect]
     Indication: IGG SUBCLASS DEFICIENCY
     Route: 042
     Dates: start: 20120718, end: 20120718

REACTIONS (10)
  - Headache [None]
  - Musculoskeletal stiffness [None]
  - Neck pain [None]
  - Hypoaesthesia [None]
  - Paraesthesia [None]
  - Photophobia [None]
  - Chest pain [None]
  - Blood pressure increased [None]
  - Gastrooesophageal reflux disease [None]
  - Malaise [None]
